FAERS Safety Report 24263746 (Version 1)
Quarter: 2024Q3

REPORT INFORMATION
  Report Type: Spontaneous
  Country: CN (occurrence: CN)
  Receive Date: 20240829
  Receipt Date: 20240829
  Transmission Date: 20241016
  Serious: Yes (Hospitalization)
  Sender: PFIZER
  Company Number: CN-PFIZER INC-PV202400111335

PATIENT
  Age: 62 Year
  Sex: Female
  Weight: 52.1 kg

DRUGS (3)
  1. LINEZOLID [Suspect]
     Active Substance: LINEZOLID
     Indication: Chronic kidney disease
     Dosage: BID
     Route: 041
     Dates: start: 20240820, end: 20240820
  2. LINEZOLID [Suspect]
     Active Substance: LINEZOLID
     Indication: Renal failure
  3. LINEZOLID [Suspect]
     Active Substance: LINEZOLID
     Indication: Cardiac failure

REACTIONS (3)
  - Abdominal distension [Not Recovered/Not Resolved]
  - Abdominal pain [Not Recovered/Not Resolved]
  - Off label use [Unknown]

NARRATIVE: CASE EVENT DATE: 20240820
